FAERS Safety Report 23797503 (Version 1)
Quarter: 2024Q2

REPORT INFORMATION
  Report Type: Other
  Country: CN (occurrence: CN)
  Receive Date: 20240430
  Receipt Date: 20240430
  Transmission Date: 20240716
  Serious: Yes (Hospitalization, Other)
  Sender: FDA-Public Use
  Company Number: CN-ASTELLAS-2024US012458

PATIENT
  Age: 42 Year
  Sex: Male
  Weight: 61 kg

DRUGS (2)
  1. PROGRAF [Suspect]
     Active Substance: TACROLIMUS
     Indication: Prophylaxis against transplant rejection
     Dosage: UNK UNK, TWICE DAILY (2 MG IN THE MORNING AND 1.5 MG IN THE EVENING)
     Route: 048
     Dates: start: 20220615, end: 20240411
  2. PROGRAF [Suspect]
     Active Substance: TACROLIMUS
     Dosage: UNK UNK, TWICE DAILY (1.5 MG IN THE MORNING AND 1 MG IN THE EVENING)
     Route: 048
     Dates: start: 202404

REACTIONS (3)
  - Suspected drug-induced liver injury [Unknown]
  - Jaundice cholestatic [Not Recovered/Not Resolved]
  - Immunosuppressant drug level abnormal [Unknown]

NARRATIVE: CASE EVENT DATE: 20240401
